FAERS Safety Report 18313598 (Version 5)
Quarter: 2024Q4

REPORT INFORMATION
  Report Type: Other
  Country: CA (occurrence: CA)
  Receive Date: 20200925
  Receipt Date: 20241219
  Transmission Date: 20250115
  Serious: Yes (Hospitalization, Other)
  Sender: APOTEX
  Company Number: CA-APOTEX-2020AP018055

PATIENT
  Age: 78 Year
  Sex: Female

DRUGS (65)
  1. AMLODIPINE [Suspect]
     Active Substance: AMLODIPINE BESYLATE
     Indication: Hypertension
     Dosage: 10 MILLIGRAM, QD
     Route: 065
  2. HYDRALAZINE [Suspect]
     Active Substance: HYDRALAZINE HYDROCHLORIDE
     Indication: Hypertension
     Dosage: UNK
     Route: 065
  3. LABETALOL [Suspect]
     Active Substance: LABETALOL
     Indication: Hypertension
     Dosage: 200 MILLIGRAM, Q.12H
     Route: 065
  4. LABETALOL [Suspect]
     Active Substance: LABETALOL
     Dosage: 200 MILLIGRAM, QD
     Route: 065
  5. LABETALOL [Suspect]
     Active Substance: LABETALOL
     Dosage: 200 MILLIGRAM, BID
     Route: 065
  6. LABETALOL [Suspect]
     Active Substance: LABETALOL
     Dosage: 500 MILLIGRAM, QD
     Route: 065
  7. LABETALOL [Suspect]
     Active Substance: LABETALOL
     Dosage: 500 MILLIGRAM, BID
     Route: 065
  8. VALSARTAN [Suspect]
     Active Substance: VALSARTAN
     Indication: Hypertension
     Dosage: 320 MILLIGRAM, QD
     Route: 065
  9. FUROSEMIDE [Suspect]
     Active Substance: FUROSEMIDE
     Indication: Oedema peripheral
     Dosage: 40 MILLIGRAM, QD
     Route: 065
  10. METFORMIN [Suspect]
     Active Substance: METFORMIN HYDROCHLORIDE
     Indication: Diabetes mellitus
     Dosage: 500 MILLIGRAM, Q.12H
     Route: 065
  11. METFORMIN [Suspect]
     Active Substance: METFORMIN HYDROCHLORIDE
     Dosage: 500 MILLIGRAM, BID
     Route: 065
  12. RISEDRONATE SODIUM [Suspect]
     Active Substance: RISEDRONATE SODIUM
     Indication: Osteoporosis
     Dosage: 35 MILLIGRAM, Q.WK.
     Route: 065
  13. RISEDRONATE SODIUM [Suspect]
     Active Substance: RISEDRONATE SODIUM
     Dosage: 1 DOSAGE FORM, Q.WK.
     Route: 065
  14. GLICLAZIDE [Suspect]
     Active Substance: GLICLAZIDE
     Indication: Diabetes mellitus
     Dosage: 30 MILLIGRAM, Q.12H
     Route: 065
  15. GLICLAZIDE [Suspect]
     Active Substance: GLICLAZIDE
     Dosage: 60 MILLIGRAM, QD
     Route: 065
  16. GLICLAZIDE [Suspect]
     Active Substance: GLICLAZIDE
     Dosage: 30 MILLIGRAM, BID
     Route: 065
  17. ASPIRIN [Suspect]
     Active Substance: ASPIRIN
     Indication: Cerebrovascular accident
     Dosage: 81 MILLIGRAM, QD
     Route: 065
  18. CLOPIDOGREL [Suspect]
     Active Substance: CLOPIDOGREL BISULFATE
     Indication: Anticoagulant therapy
     Dosage: UNK
     Route: 065
  19. ALLOPURINOL [Suspect]
     Active Substance: ALLOPURINOL
     Indication: Prophylaxis
     Dosage: 100 MILLIGRAM, QD
     Route: 065
  20. ALLOPURINOL [Suspect]
     Active Substance: ALLOPURINOL
     Indication: Gout
     Dosage: 200 MILLIGRAM
     Route: 065
  21. ALLOPURINOL [Suspect]
     Active Substance: ALLOPURINOL
     Dosage: 250 MILLIGRAM, QD
     Route: 065
  22. CALCIUM CARBONATE [Suspect]
     Active Substance: CALCIUM CARBONATE
     Indication: Osteoporosis
     Dosage: 1 DOSAGE FORM
     Route: 065
  23. FLUTICASONE [Suspect]
     Active Substance: FLUTICASONE
     Indication: Wheezing
     Dosage: 2 DOSAGE FORM, BID
     Route: 065
  24. FLUTICASONE [Suspect]
     Active Substance: FLUTICASONE
     Dosage: UNK
     Route: 065
  25. FLUTICASONE [Suspect]
     Active Substance: FLUTICASONE
     Dosage: 2 DOSAGE FORM, Q.12H
     Route: 065
  26. PANTOPRAZOLE [Suspect]
     Active Substance: PANTOPRAZOLE
     Indication: Product used for unknown indication
     Dosage: 40 MILLIGRAM, QD
     Route: 065
  27. PRAMIPEXOLE [Suspect]
     Active Substance: PRAMIPEXOLE\PRAMIPEXOLE DIHYDROCHLORIDE
     Indication: Restless legs syndrome
     Dosage: 0.25 MILLIGRAM, QD
     Route: 065
  28. RANITIDINE [Suspect]
     Active Substance: RANITIDINE
     Indication: Dyspepsia
     Dosage: 150 MILLIGRAM
     Route: 065
  29. ALBUTEROL [Suspect]
     Active Substance: ALBUTEROL
     Indication: Product used for unknown indication
     Dosage: UNK
     Route: 065
  30. SIMVASTATIN [Suspect]
     Active Substance: SIMVASTATIN
     Indication: Product used for unknown indication
     Dosage: 10 MILLIGRAM, QD
     Route: 065
  31. APIXABAN [Suspect]
     Active Substance: APIXABAN
     Indication: Anticoagulant therapy
     Dosage: 2 DOSAGE FORM, QD
     Route: 048
  32. TRAMADOL [Suspect]
     Active Substance: TRAMADOL
     Indication: Pain
     Dosage: UNK
     Route: 065
  33. ACEBUTOLOL [Suspect]
     Active Substance: ACEBUTOLOL
     Indication: Hypertension
     Dosage: UNK
     Route: 065
  34. ALISKIREN [Suspect]
     Active Substance: ALISKIREN
     Indication: Hypertension
     Dosage: 300 MILLIGRAM, QD
     Route: 065
  35. CALCIUM GLUCONATE [Suspect]
     Active Substance: CALCIUM GLUCONATE
     Indication: Osteoporosis
     Dosage: UNK
     Route: 065
  36. METHOCARBAMOL [Suspect]
     Active Substance: METHOCARBAMOL
     Indication: Pain
     Dosage: 400 MILLIGRAM, BID
     Route: 065
  37. METHOCARBAMOL [Suspect]
     Active Substance: METHOCARBAMOL
     Indication: Hypertension
     Dosage: 200 MILLIGRAM, QD
     Route: 065
  38. VITAMIN B12 [Suspect]
     Active Substance: CYANOCOBALAMIN
     Indication: Product used for unknown indication
     Dosage: UNK
     Route: 065
  39. ZOCOR [Suspect]
     Active Substance: SIMVASTATIN
     Indication: Product used for unknown indication
     Dosage: 10 MILLIGRAM, QD
     Route: 065
  40. ZOCOR [Suspect]
     Active Substance: SIMVASTATIN
     Indication: Cerebrovascular accident
  41. CALCIUM [Suspect]
     Active Substance: CALCIUM
     Indication: Product used for unknown indication
     Dosage: UNK
     Route: 065
  42. BETAMETHASONE [Suspect]
     Active Substance: BETAMETHASONE
     Indication: Psoriasis
     Dosage: UNK
     Route: 065
  43. LEVOTHYROXINE [Suspect]
     Active Substance: LEVOTHYROXINE
     Indication: Hypothyroidism
     Dosage: UNK
     Route: 065
  44. ALISKIREN HEMIFUMARATE [Suspect]
     Active Substance: ALISKIREN HEMIFUMARATE
     Indication: Hypertension
     Dosage: 300 MILLIGRAM, QD
     Route: 065
  45. BETAMETHASONE DIPROPIONATE\CALCIPOTRIENE MONOHYDRATE [Suspect]
     Active Substance: BETAMETHASONE DIPROPIONATE\CALCIPOTRIENE MONOHYDRATE
     Indication: Psoriasis
     Dosage: UNK
     Route: 065
  46. ASPIRIN [Suspect]
     Active Substance: ASPIRIN
     Indication: Cerebrovascular accident
     Dosage: 81 MILLIGRAM
     Route: 048
  47. ASPIRIN [Suspect]
     Active Substance: ASPIRIN
     Dosage: UNK
     Route: 065
  48. THEO-DUR [Suspect]
     Active Substance: THEOPHYLLINE ANHYDROUS
     Indication: Hypertension
     Dosage: UNK
     Route: 065
  49. BETAMETHASONE VALERATE [Suspect]
     Active Substance: BETAMETHASONE VALERATE
     Indication: Psoriasis
     Dosage: UNK
     Route: 065
  50. ACETAMINOPHEN [Concomitant]
     Active Substance: ACETAMINOPHEN
     Indication: Pain
     Dosage: 325 MILLIGRAM, BID
     Route: 065
  51. CALCIPOTRIENE [Concomitant]
     Active Substance: CALCIPOTRIENE
     Indication: Psoriasis
     Dosage: UNK, QD
     Route: 065
  52. PRAMIPEXOLE DIHYDROCHLORIDE [Concomitant]
     Active Substance: PRAMIPEXOLE DIHYDROCHLORIDE
     Indication: Restless legs syndrome
     Dosage: 0.25 MILLIGRAM, QD
     Route: 065
  53. PLANTAGO AFRA SEED [Concomitant]
     Active Substance: PLANTAGO AFRA SEED
     Indication: Constipation
     Dosage: UNK UNK, Q.12H
     Route: 065
  54. LEVOTHYROXINE SODIUM [Suspect]
     Active Substance: LEVOTHYROXINE SODIUM
     Indication: Hypothyroidism
     Dosage: 0.088 MILLIGRAM, QD
     Route: 065
  55. CALCIPOTRIENE [Suspect]
     Active Substance: CALCIPOTRIENE
     Indication: Psoriasis
     Dosage: UNK
     Route: 065
  56. CYANOCOBALAMIN [Suspect]
     Active Substance: CYANOCOBALAMIN
     Indication: Product used for unknown indication
     Dosage: UNK
     Route: 065
  57. JANUVIA [Suspect]
     Active Substance: SITAGLIPTIN PHOSPHATE
     Indication: Diabetes mellitus
     Dosage: 100 MILLIGRAM, QD
     Route: 065
  58. ERGOCALCIFEROL [Concomitant]
     Active Substance: ERGOCALCIFEROL
     Indication: Product used for unknown indication
     Dosage: 1 DOSAGE FORM, QD
     Route: 065
  59. ERGOCALCIFEROL [Concomitant]
     Active Substance: ERGOCALCIFEROL
     Indication: Osteoporosis
  60. ERGOCALCIFEROL [Concomitant]
     Active Substance: ERGOCALCIFEROL
     Indication: Osteoporosis
     Dosage: UNK
     Route: 065
  61. ERGOCALCIFEROL [Concomitant]
     Active Substance: ERGOCALCIFEROL
     Dosage: 1 DOSAGE FORM, QD
     Route: 065
  62. HERBALS [Concomitant]
     Active Substance: HERBALS
     Indication: Product used for unknown indication
     Dosage: UNK
     Route: 065
  63. RISEDRONATE SODIUM [Concomitant]
     Active Substance: RISEDRONATE SODIUM
     Indication: Product used for unknown indication
     Dosage: 35 MILLIGRAM, Q.WK.
     Route: 065
  64. RISEDRONATE SODIUM [Concomitant]
     Active Substance: RISEDRONATE SODIUM
     Indication: Osteoporosis
  65. HERBALS\PLANTAGO OVATA LEAF [Concomitant]
     Active Substance: HERBALS\PLANTAGO OVATA LEAF
     Indication: Constipation
     Dosage: UNK
     Route: 065

REACTIONS (17)
  - Diabetes mellitus inadequate control [Unknown]
  - Multiple drug therapy [Unknown]
  - Oedema peripheral [Unknown]
  - Exercise tolerance decreased [Unknown]
  - Blood pressure inadequately controlled [Unknown]
  - Treatment noncompliance [Unknown]
  - Medication error [Unknown]
  - Product use issue [Unknown]
  - Contusion [Unknown]
  - Mobility decreased [Unknown]
  - Hypertension [Unknown]
  - Peripheral swelling [Unknown]
  - Cognitive disorder [Unknown]
  - Depressed mood [Unknown]
  - Amnesia [Unknown]
  - Abdominal discomfort [Unknown]
  - Drug ineffective [Unknown]
